FAERS Safety Report 12162377 (Version 1)
Quarter: 2016Q1

REPORT INFORMATION
  Report Type: Report from Study
  Country: BR (occurrence: BR)
  Receive Date: 20160309
  Receipt Date: 20160309
  Transmission Date: 20160526
  Serious: Yes (Other)
  Sender: FDA-Public Use
  Company Number: BR-JNJFOC-20160305207

PATIENT
  Sex: Male

DRUGS (3)
  1. NEUTROFER [Concomitant]
     Active Substance: FERROUS BISGLYCINATE
     Route: 065
  2. CALCIGENOL [Concomitant]
     Route: 065
  3. REMICADE [Suspect]
     Active Substance: INFLIXIMAB
     Indication: CROHN^S DISEASE
     Route: 042
     Dates: start: 2014

REACTIONS (5)
  - Anaemia [Unknown]
  - Weight decreased [Unknown]
  - Haematochezia [Unknown]
  - Abdominal distension [Unknown]
  - Crohn^s disease [Unknown]

NARRATIVE: CASE EVENT DATE: 2015
